FAERS Safety Report 6723750-0 (Version None)
Quarter: 2010Q2

REPORT INFORMATION
  Report Type: 
  Country: None (occurrence: None)
  Receive Date: 20100511
  Receipt Date: 20100422
  Transmission Date: 20101027
  Serious: No
  Sender: FDA-Public Use
  Company Number: 2010-00399

PATIENT
  Sex: Male

DRUGS (1)
  1. ZICAM NASAL PRODUCTS [Suspect]
     Indication: NASOPHARYNGITIS
     Dosage: EVERY 5-6 HOURS, 5 DAYS
     Dates: start: 20100210, end: 20100215

REACTIONS (1)
  - ANOSMIA [None]
